FAERS Safety Report 25508473 (Version 1)
Quarter: 2025Q3

REPORT INFORMATION
  Report Type: Report from Study
  Country: CA (occurrence: CA)
  Receive Date: 20250703
  Receipt Date: 20250703
  Transmission Date: 20251020
  Serious: Yes (Hospitalization, Other)
  Sender: CELLTRION
  Company Number: CA-CELLTRION INC.-2025CA020877

PATIENT

DRUGS (2)
  1. RITUXIMAB [Suspect]
     Active Substance: RITUXIMAB
     Indication: Systemic scleroderma
     Dosage: 1000 MILLIGRAM, 1 EVERY 2 WEEKS
     Route: 065
  2. MYCOPHENOLATE MOFETIL [Suspect]
     Active Substance: MYCOPHENOLATE MOFETIL
     Indication: Systemic scleroderma
     Route: 065

REACTIONS (8)
  - Systemic scleroderma [Unknown]
  - Dyspepsia [Unknown]
  - Dyspnoea [Unknown]
  - Lung disorder [Unknown]
  - Skin disorder [Unknown]
  - Drug ineffective [Unknown]
  - Off label use [Unknown]
  - Intentional product use issue [Unknown]
